FAERS Safety Report 9255292 (Version 1)
Quarter: 2013Q1

REPORT INFORMATION
  Report Type: Spontaneous
  Country: US (occurrence: None)
  Receive Date: 20121212
  Receipt Date: 20121212
  Transmission Date: 20140127
  Serious: No
  Sender: FDA-Public Use
  Company Number: 1208USA011840

PATIENT
  Sex: Male
  Weight: 108.8 kg

DRUGS (6)
  1. VICTRELIS [Suspect]
     Dosage: 4 DF, TID (EVERY 7-9 HOURS WITH FOOD), ORAL
     Route: 048
  2. PEG-INTRON (PEGINTERFERON ALFA-2B) POWDER FOR INJECTION [Suspect]
     Route: 058
  3. REBETOL (RIBAVIRIN) CAPSULE, 200MG [Suspect]
     Route: 048
  4. DIOVAN (VALSARTAN) TABLET, 40 MG [Concomitant]
  5. PROCRIT (EPOETIN ALFA) INJECTION [Concomitant]
  6. HYDROCHLOROT (HYDROCHLOROTHIAZIDE) TABLET, 25 MG [Concomitant]

REACTIONS (1)
  - Anaemia [None]
